FAERS Safety Report 4975005-2 (Version None)
Quarter: 2006Q2

REPORT INFORMATION
  Report Type: 
  Country: None (occurrence: None)
  Receive Date: 20060414
  Receipt Date: 20060414
  Transmission Date: 20061013
  Serious: Yes (Hospitalization)
  Sender: FDA-Public Use
  Company Number: None

PATIENT
  Sex: Female

DRUGS (3)
  1. MITOXANTRONE [Suspect]
     Indication: ACUTE LYMPHOCYTIC LEUKAEMIA
     Dosage: 20 MG  Q48H   IV
     Route: 042
     Dates: start: 20060210, end: 20060216
  2. ETOPOSIDE [Suspect]
     Dosage: 354 MG  Q24H   IV
     Route: 042
     Dates: start: 20060210, end: 20060214
  3. CYTARABINE [Concomitant]

REACTIONS (2)
  - HYPERKERATOSIS [None]
  - SKIN EXFOLIATION [None]
